FAERS Safety Report 9062028 (Version 1)
Quarter: 2013Q1

REPORT INFORMATION
  Report Type: Spontaneous
  Country: US (occurrence: None)
  Receive Date: 20130122
  Receipt Date: 20130122
  Transmission Date: 20140127
  Serious: Yes (Death, Hospitalization, Other)
  Sender: FDA-Public Use
  Company Number: 2013MA000404

PATIENT
  Age: 34 Year
  Sex: Male

DRUGS (4)
  1. KADIAN (MORPHINE SULFATE EXTENDED-RELEASE) CAPSULES 80 MG (AELLC) [Suspect]
     Indication: PRODUCT USED FOR UNKNOWN INDICATION
     Dosage: ; UNK; UNK
  2. AMPHETAMINES (SYNTHETIC STIMULANT) [Suspect]
     Indication: PRODUCT USED FOR UNKNOWN INDICATION
     Dosage: ; UNK; UNK
  3. OXYCODONE [Suspect]
     Indication: PRODUCT USED FOR UNKNOWN INDICATION
     Dosage: ; UNK; UNK
  4. LORAZEPAM [Suspect]
     Indication: PRODUCT USED FOR UNKNOWN INDICATION
     Dosage: ; UNK; UNK

REACTIONS (24)
  - Agitation [None]
  - Delirium [None]
  - Aspartate aminotransferase increased [None]
  - Alanine aminotransferase increased [None]
  - Blood creatine phosphokinase increased [None]
  - International normalised ratio increased [None]
  - Platelet count decreased [None]
  - Blood alcohol increased [None]
  - Drug screen positive [None]
  - Blood pressure increased [None]
  - Heart rate increased [None]
  - Disseminated intravascular coagulation [None]
  - Puncture site haemorrhage [None]
  - Body temperature increased [None]
  - Blood pressure decreased [None]
  - Hypertensive heart disease [None]
  - Cardiomegaly [None]
  - Left ventricular hypertrophy [None]
  - Nephrosclerosis [None]
  - Pulmonary oedema [None]
  - Hepatic steatosis [None]
  - Brain oedema [None]
  - Thyroid neoplasm [None]
  - Toxicity to various agents [None]
